FAERS Safety Report 25626379 (Version 1)
Quarter: 2025Q3

REPORT INFORMATION
  Report Type: Spontaneous
  Country: AU (occurrence: AU)
  Receive Date: 20250731
  Receipt Date: 20250731
  Transmission Date: 20251020
  Serious: Yes (Other)
  Sender: RANBAXY
  Company Number: AU-SUN PHARMACEUTICAL INDUSTRIES LTD-2025R1-519337

PATIENT
  Age: 81 Year
  Sex: Female

DRUGS (4)
  1. AMLODIPINE [Suspect]
     Active Substance: AMLODIPINE BESYLATE
     Indication: Blood pressure increased
     Route: 065
  2. AMLODIPINE [Suspect]
     Active Substance: AMLODIPINE BESYLATE
     Route: 065
  3. PERINDOPRIL [Suspect]
     Active Substance: PERINDOPRIL
     Indication: Hypertension
     Route: 065
  4. PERINDOPRIL ERBUMINE [Suspect]
     Active Substance: PERINDOPRIL ERBUMINE
     Indication: Hypertension
     Route: 065

REACTIONS (12)
  - Autoimmune disorder [Unknown]
  - Autoimmune thyroiditis [Unknown]
  - Abdominal distension [Unknown]
  - Adverse drug reaction [Unknown]
  - Blood pressure increased [Unknown]
  - Eye swelling [Unknown]
  - Heart rate irregular [Unknown]
  - Lactose intolerance [Unknown]
  - Muscle spasms [Unknown]
  - Peripheral swelling [Recovering/Resolving]
  - Productive cough [Unknown]
  - Vasculitis [Unknown]
